FAERS Safety Report 19128848 (Version 1)
Quarter: 2021Q2

REPORT INFORMATION
  Report Type: Spontaneous
  Country: US (occurrence: US)
  Receive Date: 20210413
  Receipt Date: 20210413
  Transmission Date: 20210717
  Serious: No
  Sender: FDA-Public Use
  Company Number: US-ALLERGAN-2101914US

PATIENT
  Sex: Male

DRUGS (2)
  1. LUMIGAN [Suspect]
     Active Substance: BIMATOPROST
     Indication: PRODUCT USED FOR UNKNOWN INDICATION
     Dosage: 1 GTT, BID
     Route: 047
  2. LATANOPROST. [Suspect]
     Active Substance: LATANOPROST
     Dosage: 2 GTT, QPM
     Route: 047

REACTIONS (2)
  - Inappropriate schedule of product administration [Unknown]
  - Product packaging quantity issue [Unknown]
